FAERS Safety Report 4721634-0 (Version None)
Quarter: 2005Q3

REPORT INFORMATION
  Report Type: 
  Country: None (occurrence: None)
  Receive Date: 20050721
  Receipt Date: 20050126
  Transmission Date: 20060218
  Serious: No
  Sender: FDA-Public Use
  Company Number: US-BRISTOL-MYERS SQUIBB COMPANY-12840237

PATIENT
  Age: 81 Year
  Sex: Female
  Weight: 52 kg

DRUGS (12)
  1. COUMADIN [Suspect]
     Indication: PROPHYLAXIS
     Dosage: 7.5 MG ALTERNATING WITH 10 MG
     Route: 048
  2. ALTACE [Concomitant]
  3. ARAVA [Concomitant]
  4. CELEBREX [Concomitant]
  5. DIGITEK [Concomitant]
  6. FLURAZEPAM [Concomitant]
  7. FOLIC ACID [Concomitant]
  8. FOSAMAX [Concomitant]
  9. HYDROCHLOROTHIAZIDE [Concomitant]
  10. PREDNISONE [Concomitant]
  11. TYLENOL W/ CODEINE NO. 3 [Concomitant]
  12. VICODIN [Concomitant]

REACTIONS (1)
  - INTERNATIONAL NORMALISED RATIO FLUCTUATION [None]
